FAERS Safety Report 4428030-4 (Version None)
Quarter: 2004Q3

REPORT INFORMATION
  Report Type: 
  Country: None (occurrence: None)
  Receive Date: 20040817
  Receipt Date: 20040809
  Transmission Date: 20050211
  Serious: Yes (Hospitalization)
  Sender: FDA-Public Use
  Company Number: JP-MERCK-0408USA01268

PATIENT

DRUGS (3)
  1. LASIX [Concomitant]
     Route: 048
  2. PEPCID [Suspect]
     Route: 048
     Dates: start: 20040715, end: 20040809
  3. NITRODERM [Concomitant]
     Route: 065

REACTIONS (1)
  - HAEMOLYTIC ANAEMIA [None]
